FAERS Safety Report 24014743 (Version 1)
Quarter: 2024Q2

REPORT INFORMATION
  Report Type: Spontaneous
  Country: US (occurrence: None)
  Receive Date: 20240625
  Receipt Date: 20240625
  Transmission Date: 20240717
  Serious: Yes (Life-Threatening, Other)
  Sender: FDA-Public Use
  Company Number: None

PATIENT
  Age: 66 Year
  Sex: Female
  Weight: 87.3 kg

DRUGS (2)
  1. JARDIANCE [Suspect]
     Active Substance: EMPAGLIFLOZIN
     Indication: Diabetes mellitus
     Dosage: 1 TABLET ORAL?
     Route: 048
     Dates: start: 20240408, end: 20240427
  2. OTC ITCH MEDICATIONS [Concomitant]

REACTIONS (16)
  - Feeling abnormal [None]
  - Headache [None]
  - Dizziness [None]
  - Nausea [None]
  - Pain [None]
  - Discomfort [None]
  - Pruritus [None]
  - Ulcer [None]
  - Fungal infection [None]
  - Haemorrhoids [None]
  - Urinary tract infection [None]
  - Cystitis [None]
  - Sensation of foreign body [None]
  - Throat irritation [None]
  - Balance disorder [None]
  - Vomiting [None]

NARRATIVE: CASE EVENT DATE: 20240408
